FAERS Safety Report 7177660-8 (Version None)
Quarter: 2010Q4

REPORT INFORMATION
  Report Type: 
  Country: None (occurrence: None)
  Receive Date: 20101123
  Receipt Date: 20101005
  Transmission Date: 20110411
  Serious: No
  Sender: FDA-Public Use
  Company Number: 016537

PATIENT
  Sex: Female
  Weight: 53 kg

DRUGS (7)
  1. CIMZIA [Suspect]
     Indication: CROHN'S DISEASE
     Dosage: (400 MG 1X/4 WEEKS SUBCUTANEOUS) ; (SUBCUTANEOUS)
     Route: 058
     Dates: start: 20100520
  2. SYNTHROID [Concomitant]
  3. FERROUS SULFATE [Concomitant]
  4. IMODIUM /01493801/ [Concomitant]
  5. CALCIUM W/VITAMIN D NOS [Concomitant]
  6. VITAMIN D [Concomitant]
  7. VITAMIN B12 NOS [Concomitant]

REACTIONS (6)
  - BODY TEMPERATURE INCREASED [None]
  - DRUG INEFFECTIVE [None]
  - LACRIMATION INCREASED [None]
  - NASOPHARYNGITIS [None]
  - SINUS CONGESTION [None]
  - SNEEZING [None]
